FAERS Safety Report 7408222-2 (Version None)
Quarter: 2011Q2

REPORT INFORMATION
  Report Type: 
  Country: None (occurrence: None)
  Receive Date: 20110412
  Receipt Date: 20101220
  Transmission Date: 20111010
  Serious: No
  Sender: FDA-Public Use
  Company Number: A0901024A

PATIENT
  Age: 70 Year
  Sex: Male

DRUGS (2)
  1. JALYN [Suspect]
     Indication: PROSTATIC DISORDER
     Dosage: .5MG PER DAY
     Route: 048
     Dates: start: 20101209, end: 20101219
  2. LIPITOR [Concomitant]

REACTIONS (1)
  - EJACULATION DISORDER [None]
